FAERS Safety Report 18548202 (Version 1)
Quarter: 2020Q4

REPORT INFORMATION
  Report Type: Report from Study
  Country: US (occurrence: US)
  Receive Date: 20201126
  Receipt Date: 20201126
  Transmission Date: 20210114
  Serious: Yes (Death)
  Sender: FDA-Public Use
  Company Number: US-INGENUS PHARMACEUTICALS, LLC-2020INF000200

PATIENT
  Age: 23 Year
  Sex: Female

DRUGS (2)
  1. GEMCITABINE. [Suspect]
     Active Substance: GEMCITABINE
     Indication: OSTEOSARCOMA
     Dosage: 900 MILLIGRAM/SQ. METER, ON DAYS 1 AND 8 OF 21-DAY CYCLE
     Route: 065
  2. DOCETAXEL. [Suspect]
     Active Substance: DOCETAXEL
     Indication: OSTEOSARCOMA
     Dosage: 75 MILLIGRAM/SQ. METER, EVERY 3 WEEKS
     Route: 065

REACTIONS (4)
  - Capillary leak syndrome [Fatal]
  - Dacryostenosis acquired [Unknown]
  - Oedema [Fatal]
  - Madarosis [Unknown]
